FAERS Safety Report 6878039-6 (Version None)
Quarter: 2010Q3

REPORT INFORMATION
  Report Type: 
  Country: None (occurrence: None)
  Receive Date: 20100727
  Receipt Date: 20100721
  Transmission Date: 20110219
  Serious: Yes (Death, Other)
  Sender: FDA-Public Use
  Company Number: CH-ROXANE LABORATORIES, INC.-2010-RO-00892RO

PATIENT
  Age: 16 Month
  Weight: 6 kg

DRUGS (2)
  1. COCAINE [Suspect]
  2. HEROIN [Suspect]

REACTIONS (4)
  - ACCIDENTAL EXPOSURE [None]
  - DEHYDRATION [None]
  - STARVATION [None]
  - TOXICOLOGIC TEST ABNORMAL [None]
